FAERS Safety Report 16477421 (Version 2)
Quarter: 2020Q2

REPORT INFORMATION
  Report Type: Spontaneous
  Country: US (occurrence: US)
  Receive Date: 20190626
  Receipt Date: 20200624
  Transmission Date: 20200713
  Serious: No
  Sender: FDA-Public Use
  Company Number: US-AUROBINDO-AUR-APL-2018-048760

PATIENT
  Sex: Female

DRUGS (2)
  1. ZOLPIDEM TARTRATE TABLETS 5 MG [Suspect]
     Active Substance: ZOLPIDEM TARTRATE
     Indication: INSOMNIA
     Dosage: UNK
     Route: 065
  2. ALPRAZOLAM TABLETS USP 0.5MG [Suspect]
     Active Substance: ALPRAZOLAM
     Indication: ANXIETY
     Dosage: UNK
     Route: 065

REACTIONS (3)
  - Therapeutic product effect decreased [Unknown]
  - Hangover [Unknown]
  - Wrong technique in product usage process [Unknown]
